FAERS Safety Report 5893073-0 (Version None)
Quarter: 2008Q3

REPORT INFORMATION
  Report Type: 
  Country: None (occurrence: None)
  Receive Date: 20080923
  Receipt Date: 20080331
  Transmission Date: 20090109
  Serious: No
  Sender: FDA-Public Use
  Company Number: US-ASTRAZENECA-2006UW11908

PATIENT
  Age: 30 Year
  Sex: Female
  Weight: 89.8 kg

DRUGS (8)
  1. SEROQUEL [Suspect]
     Indication: ANGER
     Dosage: 100MG - 300MG
     Route: 048
     Dates: start: 20030801, end: 20071201
  2. SEROQUEL [Suspect]
     Indication: DEPRESSION
     Dosage: 100MG - 300MG
     Route: 048
     Dates: start: 20030801, end: 20071201
  3. SEROQUEL [Suspect]
     Indication: SCHIZOPHRENIA
     Dosage: 100MG - 300MG
     Route: 048
     Dates: start: 20030801, end: 20071201
  4. ABILIFY [Concomitant]
     Dates: start: 20051101
  5. CLOZARIL [Concomitant]
     Dosage: 40 MG
     Dates: start: 20020401
  6. GEODON [Concomitant]
     Dosage: 40 MG
     Dates: start: 20020401
  7. RISPERDAL [Concomitant]
     Dosage: 3 MG
     Dates: start: 20020719
  8. ZYPREXA [Concomitant]
     Dosage: 7.5MG - 20MG
     Dates: start: 19990101, end: 20020401

REACTIONS (6)
  - CARDIAC DISORDER [None]
  - DIABETES MELLITUS [None]
  - PYREXIA [None]
  - RASH [None]
  - SLEEP DISORDER [None]
  - WEIGHT INCREASED [None]
